FAERS Safety Report 11430608 (Version 1)
Quarter: 2015Q3

REPORT INFORMATION
  Report Type: Spontaneous
  Country: US (occurrence: US)
  Receive Date: 20150828
  Receipt Date: 20150828
  Transmission Date: 20151125
  Serious: No
  Sender: FDA-Public Use
  Company Number: US-ROCHE-1199100

PATIENT
  Sex: Male

DRUGS (4)
  1. INCIVEK [Suspect]
     Active Substance: TELAPREVIR
     Indication: CHRONIC HEPATITIS C
     Route: 048
     Dates: start: 20130221
  2. PEGASYS [Suspect]
     Active Substance: PEGINTERFERON ALFA-2A
     Indication: CHRONIC HEPATITIS C
     Route: 058
     Dates: start: 20130222
  3. INCIVEK [Suspect]
     Active Substance: TELAPREVIR
     Dosage: 2 TABS
     Route: 048
     Dates: start: 20130221
  4. RIBASPHERE [Suspect]
     Active Substance: RIBAVIRIN
     Indication: CHRONIC HEPATITIS C
     Dosage: IN DIVIDED DOSES
     Route: 048
     Dates: start: 20130221

REACTIONS (11)
  - Injection site rash [Recovering/Resolving]
  - Pruritus [Unknown]
  - Fatigue [Unknown]
  - Diarrhoea [Recovered/Resolved]
  - Tenderness [Unknown]
  - Injection site pruritus [Unknown]
  - Haemorrhoids [Unknown]
  - Pain [Unknown]
  - Haemoglobin decreased [Unknown]
  - Injection site reaction [Unknown]
  - Chills [Unknown]
